FAERS Safety Report 17351065 (Version 1)
Quarter: 2020Q1

REPORT INFORMATION
  Report Type: Report from Study
  Country: IT (occurrence: IT)
  Receive Date: 20200130
  Receipt Date: 20200130
  Transmission Date: 20200409
  Serious: Yes (Hospitalization)
  Sender: FDA-Public Use
  Company Number: IT-TEVA-2020-IT-1177079

PATIENT
  Age: 87 Year
  Sex: Female

DRUGS (7)
  1. RAMIPRIL. [Concomitant]
     Active Substance: RAMIPRIL
  2. PANTOPRAZOLE [Suspect]
     Active Substance: PANTOPRAZOLE
     Dosage: 20 MG
     Route: 048
     Dates: end: 20190820
  3. BROTIZOLAM [Concomitant]
     Active Substance: BROTIZOLAM
     Dates: end: 20190820
  4. ACETYLSALICYLIC ACID [Concomitant]
     Active Substance: ASPIRIN
     Dosage: 100 MG
     Route: 048
     Dates: end: 20190823
  5. INDAPAMIDE. [Suspect]
     Active Substance: INDAPAMIDE
     Indication: HYPERTENSION
     Dosage: 1.5 MG
     Route: 048
     Dates: end: 20190820
  6. LENDORMIN 0,25 MG COMPRESSE [Concomitant]
  7. KCL-RETARD 600 MG COMPRESSE A RILASCIO PROLUNGATO [Concomitant]

REACTIONS (2)
  - Electrolyte imbalance [Recovering/Resolving]
  - Hyponatraemia [Recovering/Resolving]

NARRATIVE: CASE EVENT DATE: 20190820
